FAERS Safety Report 10011971 (Version 3)
Quarter: 2014Q2

REPORT INFORMATION
  Report Type: Spontaneous
  Country: CA (occurrence: CA)
  Receive Date: 20140314
  Receipt Date: 20140501
  Transmission Date: 20141212
  Serious: Yes (Other)
  Sender: FDA-Public Use
  Company Number: CA-JNJFOC-20140303161

PATIENT
  Sex: 0

DRUGS (7)
  1. INFLIXIMAB, RECOMBINANT [Suspect]
     Indication: CROHN^S DISEASE
     Dosage: AT WEEKS 1, 3, 7, 14, 22, 38 AND 46 (ALSO REPORTED AS AT 1, 3, 7, 14 AND EVERY 8 WEEKS THEREAFTER)
     Route: 042
  2. METHOTREXATE [Suspect]
     Indication: CROHN^S DISEASE
     Dosage: FROM WEEK 3
     Route: 058
  3. METHOTREXATE [Suspect]
     Indication: CROHN^S DISEASE
     Dosage: FROM WEEK 5 TO WEEK 50
     Route: 058
  4. METHOTREXATE [Suspect]
     Indication: CROHN^S DISEASE
     Dosage: FROM WEEK 1
     Route: 058
  5. HYDROCORTISONE [Concomitant]
     Indication: PREMEDICATION
     Route: 042
  6. FOLIC ACID [Concomitant]
     Indication: DRUG TOXICITY PROPHYLAXIS
     Route: 048
  7. PREDNISONE [Concomitant]
     Dosage: INDUCTION DOSE (15 TO 40 MG/DAY) WITH IN 6 WEEKS THEN TAPPERED
     Route: 065

REACTIONS (37)
  - Intestinal resection [Unknown]
  - Crohn^s disease [Unknown]
  - Infusion related reaction [Unknown]
  - Drug specific antibody present [Unknown]
  - Neutropenia [Unknown]
  - Hepatic enzyme abnormal [Unknown]
  - Abdominal distension [Unknown]
  - Abdominal pain [Unknown]
  - Arthralgia [Unknown]
  - Constipation [Unknown]
  - Diarrhoea [Unknown]
  - Hepatic enzyme increased [Unknown]
  - Haematochezia [Unknown]
  - Influenza [Unknown]
  - Insomnia [Unknown]
  - Myalgia [Unknown]
  - Bone density decreased [Unknown]
  - Pain in extremity [Unknown]
  - Anorectal disorder [Unknown]
  - Laryngeal pain [Unknown]
  - Respiratory tract infection [Unknown]
  - Sinusitis [Unknown]
  - Skin lesion [Unknown]
  - Rash [Unknown]
  - Vision blurred [Unknown]
  - Back pain [Unknown]
  - Dizziness [Unknown]
  - Procedural pain [Unknown]
  - Nausea [Unknown]
  - Acne [Unknown]
  - Contusion [Unknown]
  - Cough [Unknown]
  - Dyspepsia [Unknown]
  - Fatigue [Unknown]
  - Pyrexia [Unknown]
  - Headache [Unknown]
  - Vomiting [Unknown]
